FAERS Safety Report 11411172 (Version 1)
Quarter: 2015Q3

REPORT INFORMATION
  Report Type: Spontaneous
  Country: US (occurrence: US)
  Receive Date: 20150821
  Receipt Date: 20150821
  Transmission Date: 20151125
  Serious: No
  Sender: FDA-Public Use
  Company Number: US-ELI_LILLY_AND_COMPANY-US201004003610

PATIENT

DRUGS (4)
  1. HUMULIN N [Suspect]
     Active Substance: INSULIN HUMAN
     Indication: DIABETES MELLITUS
     Dosage: 60 U, EACH MORNING
  2. AMARYL [Concomitant]
     Active Substance: GLIMEPIRIDE
     Dosage: UNK, DAILY (1/D)
  3. NOVOLOG [Concomitant]
     Active Substance: INSULIN ASPART
  4. HUMULIN N [Suspect]
     Active Substance: INSULIN HUMAN
     Dosage: 78 U, EACH EVENING
     Dates: start: 2009

REACTIONS (6)
  - Blood glucose increased [Unknown]
  - Drug ineffective [Unknown]
  - Blood glucose decreased [Unknown]
  - Wrong technique in product usage process [Unknown]
  - Expired product administered [Unknown]
  - Injection site pain [Unknown]

NARRATIVE: CASE EVENT DATE: 201004
